FAERS Safety Report 25955983 (Version 1)
Quarter: 2025Q4

REPORT INFORMATION
  Report Type: Spontaneous
  Country: GB (occurrence: GB)
  Receive Date: 20251024
  Receipt Date: 20251024
  Transmission Date: 20260117
  Serious: Yes (Other)
  Sender: TORRENT PHARMA INC.
  Company Number: None

PATIENT
  Age: 55 Year
  Sex: Male
  Weight: 79 kg

DRUGS (7)
  1. CLOPIDOGREL [Suspect]
     Active Substance: CLOPIDOGREL BISULFATE
     Indication: Cerebrovascular accident
     Dosage: CLOPIDOGREL 75MG AM
     Route: 065
     Dates: start: 20251013
  2. ASPIRIN\CLOPIDOGREL [Suspect]
     Active Substance: ASPIRIN\CLOPIDOGREL
     Indication: Cerebrovascular accident
     Dosage: ASPIRIN 75MG AM
     Route: 065
     Dates: start: 20251013
  3. AMLODIPINE [Concomitant]
     Active Substance: AMLODIPINE BESYLATE
     Indication: Hypertension
     Dosage: UNKNOWN
     Route: 065
     Dates: start: 20250923
  4. ATENOLOL [Concomitant]
     Active Substance: ATENOLOL
     Indication: Renal hypertension
     Dosage: UNKNOWN
     Route: 065
     Dates: start: 20250923
  5. ATORVASTATIN [Concomitant]
     Active Substance: ATORVASTATIN
     Indication: Cerebrovascular accident
     Dosage: UNKNOWN
     Route: 065
     Dates: start: 20251013
  6. DOXAZOSIN [Concomitant]
     Active Substance: DOXAZOSIN MESYLATE
     Indication: Renal hypertension
     Dosage: UNKNOWN
     Route: 065
     Dates: start: 20250923
  7. SERTRALINE [Concomitant]
     Active Substance: SERTRALINE HYDROCHLORIDE
     Indication: Depression
     Dosage: UNKNOWN
     Route: 065
     Dates: start: 20140301

REACTIONS (1)
  - Feeling cold [Not Recovered/Not Resolved]

NARRATIVE: CASE EVENT DATE: 20251016
